FAERS Safety Report 5277438-6 (Version None)
Quarter: 2007Q1

REPORT INFORMATION
  Report Type: 
  Country: None (occurrence: None)
  Receive Date: 20061213
  Receipt Date: 20060608
  Transmission Date: 20070707
  Serious: No
  Sender: FDA-Public Use
  Company Number: 2006UW05688

PATIENT
  Age: 35 Year
  Sex: Female
  Weight: 89.8122 kg

DRUGS (4)
  1. SEROQUEL [Suspect]
     Indication: BIPOLAR DISORDER
     Dosage: 25 MG ONCE PO
     Route: 048
     Dates: start: 20060328, end: 20060328
  2. LOTREL [Concomitant]
  3. NEXIUM [Concomitant]
  4. TEVETEN /CH/ [Concomitant]

REACTIONS (5)
  - BRADYCARDIA [None]
  - CONFUSIONAL STATE [None]
  - DYSPNOEA [None]
  - HYPOTENSION [None]
  - SYNCOPE [None]
